FAERS Safety Report 24249692 (Version 1)
Quarter: 2024Q3

REPORT INFORMATION
  Report Type: Spontaneous
  Country: US (occurrence: US)
  Receive Date: 20240826
  Receipt Date: 20240826
  Transmission Date: 20241017
  Serious: No
  Sender: SANOFI AVENTIS
  Company Number: US-SA-SAC20240819001226

PATIENT
  Age: 57 Year
  Sex: Female
  Weight: 68.9 kg

DRUGS (2)
  1. DUPIXENT [Suspect]
     Active Substance: DUPILUMAB
     Indication: Dermatitis allergic
     Dosage: 300 MG, QOW
     Route: 058
  2. NEPAFENAC;PREDNISOLONE [Concomitant]

REACTIONS (5)
  - Cough [Unknown]
  - Nausea [Unknown]
  - Vomiting [Unknown]
  - Dizziness [Unknown]
  - Mastectomy [Unknown]

NARRATIVE: CASE EVENT DATE: 20240101
